FAERS Safety Report 22586492 (Version 1)
Quarter: 2023Q2

REPORT INFORMATION
  Report Type: Spontaneous
  Country: US (occurrence: US)
  Receive Date: 20230611
  Receipt Date: 20230611
  Transmission Date: 20230722
  Serious: No
  Sender: FDA-Public Use
  Company Number: US-PERRIGO-22US013051

PATIENT
  Age: 72 Year
  Sex: Female

DRUGS (2)
  1. DICLOFENAC SODIUM [Suspect]
     Active Substance: DICLOFENAC SODIUM
     Indication: Arthralgia
     Dosage: UNK, QID
     Route: 061
     Dates: start: 202206
  2. LOVASTATIN [Concomitant]
     Active Substance: LOVASTATIN
     Indication: Hyperlipidaemia
     Dosage: UNK
     Route: 065

REACTIONS (4)
  - Rash [Not Recovered/Not Resolved]
  - Skin exfoliation [Recovering/Resolving]
  - Incorrect product administration duration [Unknown]
  - Underdose [Unknown]

NARRATIVE: CASE EVENT DATE: 20220601
